FAERS Safety Report 6034401-5 (Version None)
Quarter: 2009Q1

REPORT INFORMATION
  Report Type: 
  Country: None (occurrence: None)
  Receive Date: 20090112
  Receipt Date: 20081002
  Transmission Date: 20090719
  Serious: Yes (Hospitalization)
  Sender: FDA-Public Use
  Company Number: A0751185A

PATIENT
  Age: 58 Year
  Sex: Female

DRUGS (26)
  1. IMITREX [Suspect]
     Indication: MIGRAINE
     Route: 065
     Dates: start: 20080120
  2. CLINICAL STUDY MEDICATION [Suspect]
     Indication: HEPATITIS C
     Route: 065
     Dates: end: 20080426
  3. PEG-INTRON [Suspect]
     Indication: HEPATITIS C
     Dates: end: 20080502
  4. IBUPROFEN [Concomitant]
     Dates: start: 20030101
  5. COD LIVER OIL [Concomitant]
     Dates: start: 20020101
  6. VITAMIN E [Concomitant]
     Dates: start: 20020101
  7. ASCORBIC ACID [Concomitant]
     Dates: start: 20020101
  8. RIBOFLAVIN TAB [Concomitant]
     Dates: start: 20020101
  9. LAC-HYDRIN [Concomitant]
     Dates: start: 20020101
  10. ACETAMINOPHEN [Concomitant]
     Dates: start: 20070529
  11. DICHLORALPHENAZONE [Concomitant]
     Dates: start: 20070529
  12. ISOMETHEPTENE [Concomitant]
     Dates: start: 20020101
  13. FOSAMAX [Concomitant]
     Dates: start: 20020101
  14. ALPHA LIPOIC ACID [Concomitant]
     Dates: start: 20040901
  15. FLAXSEED OIL [Concomitant]
     Dates: start: 20070601
  16. TYLENOL (CAPLET) [Concomitant]
     Dates: start: 20070601
  17. NEURONTIN [Concomitant]
     Dates: start: 20070827
  18. AMERGE [Concomitant]
     Dates: start: 20071112
  19. PROMETHAZINE [Concomitant]
     Dates: start: 20070701
  20. WELLBUTRIN [Concomitant]
     Dates: start: 20071107
  21. VICODIN [Concomitant]
     Dates: start: 20071128
  22. ENSURE [Concomitant]
     Dates: start: 20070201
  23. VIVELLE [Concomitant]
     Dates: start: 20030701
  24. MAXALT [Concomitant]
     Dates: start: 20070411
  25. CYCLOBENZAPRINE HCL [Concomitant]
     Dates: start: 20050101
  26. MULTI-VITAMIN [Concomitant]
     Dates: start: 20050101

REACTIONS (3)
  - BUNDLE BRANCH BLOCK LEFT [None]
  - CHEST DISCOMFORT [None]
  - CHEST PAIN [None]
